FAERS Safety Report 8154244-6 (Version None)
Quarter: 2012Q1

REPORT INFORMATION
  Report Type: 
  Country: None (occurrence: None)
  Receive Date: 20120221
  Receipt Date: 20120208
  Transmission Date: 20120608
  Serious: Yes (Hospitalization, Other)
  Sender: FDA-Public Use
  Company Number: US-BAYER-2010-002105

PATIENT
  Sex: Female
  Weight: 68.027 kg

DRUGS (2)
  1. METFORMIN HCL [Concomitant]
     Dosage: 500 MG, UNK
     Dates: start: 20060304
  2. YASMIN [Suspect]
     Indication: PRODUCT USED FOR UNKNOWN INDICATION
     Dosage: UNK
     Dates: start: 20060301, end: 20070401

REACTIONS (3)
  - PULMONARY EMBOLISM [None]
  - THROMBOSIS [None]
  - INJURY [None]
